FAERS Safety Report 4311300-8 (Version None)
Quarter: 2004Q1

REPORT INFORMATION
  Report Type: 
  Country: None (occurrence: None)
  Receive Date: 20040304
  Receipt Date: 20040223
  Transmission Date: 20041129
  Serious: Yes (Hospitalization)
  Sender: FDA-Public Use
  Company Number: FR-GLAXOSMITHKLINE-B0324385A

PATIENT
  Age: 80 Year
  Sex: Female
  Weight: 84 kg

DRUGS (4)
  1. CLAMOXYL [Suspect]
     Indication: BRONCHITIS ACUTE
     Route: 048
     Dates: start: 20040109, end: 20040116
  2. COZAAR [Concomitant]
     Route: 048
     Dates: start: 20030101
  3. HYPERIUM [Concomitant]
     Dosage: 1UNIT PER DAY
     Route: 048
     Dates: start: 20030901
  4. PYOSTACINE [Concomitant]
     Indication: LUNG DISORDER
     Dosage: 1G THREE TIMES PER DAY
     Dates: start: 20040122

REACTIONS (6)
  - ACUTE GENERALISED EXANTHEMATOUS PUSTULOSIS [None]
  - GENERALISED ERYTHEMA [None]
  - LEUKOCYTOSIS [None]
  - PYREXIA [None]
  - RASH PUSTULAR [None]
  - SKIN DISORDER [None]
